FAERS Safety Report 9628594 (Version 3)
Quarter: 2014Q1

REPORT INFORMATION
  Report Type: Report from Study
  Country: JP (occurrence: JP)
  Receive Date: 20131017
  Receipt Date: 20140206
  Transmission Date: 20141002
  Serious: Yes (Hospitalization)
  Sender: FDA-Public Use
  Company Number: JP-JNJFOC-20131007838

PATIENT
  Age: 76 Year
  Sex: Male
  Weight: 56 kg

DRUGS (6)
  1. XARELTO [Suspect]
     Indication: ATRIAL FIBRILLATION
     Route: 048
     Dates: start: 20130516, end: 20130702
  2. XARELTO [Suspect]
     Indication: CEREBROVASCULAR ACCIDENT PROPHYLAXIS
     Route: 048
     Dates: start: 20130516, end: 20130702
  3. XARELTO [Suspect]
     Indication: THROMBOSIS PROPHYLAXIS
     Route: 048
     Dates: start: 20130516, end: 20130702
  4. AMIODARONE HYDROCHLORIDE [Concomitant]
     Route: 048
  5. RENIVACE [Concomitant]
     Route: 048
  6. MAINTATE [Concomitant]
     Route: 048

REACTIONS (1)
  - Renal failure acute [Recovered/Resolved]
